FAERS Safety Report 22223138 (Version 1)
Quarter: 2023Q2

REPORT INFORMATION
  Report Type: Spontaneous
  Country: JP (occurrence: JP)
  Receive Date: 20230418
  Receipt Date: 20230418
  Transmission Date: 20230722
  Serious: Yes (Death)
  Sender: FDA-Public Use
  Company Number: JP-PFIZER INC-PV202300068581

PATIENT
  Age: 49 Year
  Sex: Female

DRUGS (3)
  1. TRIAZOLAM [Suspect]
     Active Substance: TRIAZOLAM
     Dosage: 0.75 MG
  2. AMITRIPTYLINE [Concomitant]
     Active Substance: AMITRIPTYLINE
     Indication: Depression
     Dosage: 150 MG
  3. CLOXAZOLAM [Concomitant]
     Active Substance: CLOXAZOLAM
     Dosage: 5 MG

REACTIONS (1)
  - Overdose [Fatal]
